FAERS Safety Report 6492835-9 (Version None)
Quarter: 2009Q4

REPORT INFORMATION
  Report Type: 
  Country: None (occurrence: None)
  Receive Date: 20091214
  Receipt Date: 20091202
  Transmission Date: 20100525
  Serious: Yes (Hospitalization)
  Sender: FDA-Public Use
  Company Number: JP-NOVOPROD-301549

PATIENT
  Age: 65 Year
  Sex: Female
  Weight: 61 kg

DRUGS (2)
  1. NOVORAPID CHU PENFILL [Suspect]
     Indication: TYPE 2 DIABETES MELLITUS
     Dosage: 2003
     Route: 058
     Dates: start: 20030101
  2. HUMACART N [Concomitant]
     Indication: TYPE 2 DIABETES MELLITUS
     Dosage: /SC
     Dates: start: 20030101

REACTIONS (3)
  - ANTI-GAD ANTIBODY [None]
  - ANTI-INSULIN ANTIBODY INCREASED [None]
  - DIABETES MELLITUS INADEQUATE CONTROL [None]
